FAERS Safety Report 7932772-3 (Version None)
Quarter: 2011Q4

REPORT INFORMATION
  Report Type: 
  Country: None (occurrence: None)
  Receive Date: 20111122
  Receipt Date: 20111115
  Transmission Date: 20120403
  Serious: Yes (Other)
  Sender: FDA-Public Use
  Company Number: CA-JNJFOC-20111107060

PATIENT
  Sex: Female
  Weight: 96 kg

DRUGS (3)
  1. SYNTHROID [Concomitant]
  2. VITAMIN TAB [Concomitant]
  3. REMICADE [Suspect]
     Indication: COLITIS ULCERATIVE
     Route: 042

REACTIONS (1)
  - JOINT SWELLING [None]
